FAERS Safety Report 13008880 (Version 1)
Quarter: 2016Q4

REPORT INFORMATION
  Report Type: Spontaneous
  Country: CA (occurrence: CA)
  Receive Date: 20161208
  Receipt Date: 20161208
  Transmission Date: 20170207
  Serious: No
  Sender: FDA-Public Use
  Company Number: CA-WARNER CHILCOTT, LLC-1060557

PATIENT
  Age: 68 Year
  Sex: Male

DRUGS (6)
  1. CALTRATE WITH VITAMIN D [Suspect]
     Active Substance: CALCIUM CARBONATE\CHOLECALCIFEROL
  2. CENTRUM [Suspect]
     Active Substance: VITAMINS
  3. CELEBREX [Suspect]
     Active Substance: CELECOXIB
     Route: 048
  4. FOLIC ACID. [Suspect]
     Active Substance: FOLIC ACID
  5. ACTONEL [Suspect]
     Active Substance: RISEDRONATE SODIUM
     Route: 048
  6. HYDROXYCHLOROQUINE [Suspect]
     Active Substance: HYDROXYCHLOROQUINE

REACTIONS (5)
  - Hypoacusis [Not Recovered/Not Resolved]
  - Condition aggravated [Not Recovered/Not Resolved]
  - Cardiac disorder [Not Recovered/Not Resolved]
  - Rheumatoid arthritis [Not Recovered/Not Resolved]
  - Arthralgia [Not Recovered/Not Resolved]
